FAERS Safety Report 17342069 (Version 1)
Quarter: 2020Q1

REPORT INFORMATION
  Report Type: Spontaneous
  Country: US (occurrence: US)
  Receive Date: 20200129
  Receipt Date: 20200129
  Transmission Date: 20200409
  Serious: Yes (Death, Hospitalization)
  Sender: FDA-Public Use
  Company Number: US-JNJFOC-20200134582

PATIENT
  Age: 65 Year
  Sex: Male

DRUGS (5)
  1. DIETARY SUPPLEMENT [Suspect]
     Active Substance: DIETARY SUPPLEMENT
     Indication: SUICIDE ATTEMPT
     Route: 048
  2. SAW PALMETTO                       /00833501/ [Suspect]
     Active Substance: HERBALS\SAW PALMETTO
     Indication: SUICIDE ATTEMPT
     Route: 048
  3. FISH OIL                           /00492901/ [Suspect]
     Active Substance: COD LIVER OIL
     Indication: SUICIDE ATTEMPT
     Route: 048
  4. IBUPROFEN. [Suspect]
     Active Substance: IBUPROFEN
     Indication: SUICIDE ATTEMPT
     Route: 048
  5. MARIJUANA [Suspect]
     Active Substance: CANNABIS SATIVA SUBSP. INDICA TOP
     Indication: SUICIDE ATTEMPT
     Route: 048

REACTIONS (1)
  - Toxicity to various agents [Fatal]
